FAERS Safety Report 5484380-4 (Version None)
Quarter: 2007Q4

REPORT INFORMATION
  Report Type: 
  Country: None (occurrence: None)
  Receive Date: 20071010
  Receipt Date: 20070926
  Transmission Date: 20080405
  Serious: Yes (Other)
  Sender: FDA-Public Use
  Company Number: L07-USA-05388-01

PATIENT
  Age: 53 Year
  Sex: Male

DRUGS (6)
  1. CITALOPRAM HYDROBROMIDE [Suspect]
     Indication: DEPRESSION
     Dosage: 40 MG QD
  2. CITALOPRAM HYDROBROMIDE [Suspect]
     Indication: PROPHYLAXIS
     Dosage: 40 MG QD
  3. INTERFERON [Suspect]
     Indication: HEPATITIS C VIRUS
  4. RIBAVIRIN [Suspect]
     Indication: HEPATITIS C VIRUS
  5. VALDECOXIB [Suspect]
     Indication: PAIN
  6. ACETAMINOPHEN [Suspect]
     Indication: PAIN

REACTIONS (2)
  - FALL [None]
  - HAEMATOMA [None]
